FAERS Safety Report 13769093 (Version 1)
Quarter: 2017Q3

REPORT INFORMATION
  Report Type: Spontaneous
  Country: US (occurrence: US)
  Receive Date: 20170719
  Receipt Date: 20170719
  Transmission Date: 20171127
  Serious: No
  Sender: FDA-Public Use
  Company Number: US-BAUSCH-BL-2016-022544

PATIENT
  Age: 86 Year
  Sex: Female
  Weight: 43.13 kg

DRUGS (6)
  1. XIFAXAN [Suspect]
     Active Substance: RIFAXIMIN
     Indication: ABDOMINAL DISTENSION
     Route: 048
     Dates: start: 201609
  2. XIFAXAN [Suspect]
     Active Substance: RIFAXIMIN
     Indication: ABDOMINAL INFECTION
  3. AMLODIPINE [Concomitant]
     Active Substance: AMLODIPINE BESYLATE
     Indication: HYPERTENSION
     Route: 048
  4. PLAVIX [Concomitant]
     Active Substance: CLOPIDOGREL BISULFATE
     Indication: TRANSIENT ISCHAEMIC ATTACK
     Route: 048
  5. PRESERVISION AREDS [Concomitant]
     Active Substance: MINERALS\VITAMINS
     Indication: MACULAR DEGENERATION
     Route: 048
  6. CITRACAL PLUS VITAMIN D [Concomitant]
     Indication: OSTEOPENIA
     Route: 048

REACTIONS (1)
  - Off label use [Unknown]

NARRATIVE: CASE EVENT DATE: 201609
